FAERS Safety Report 12728784 (Version 1)
Quarter: 2016Q3

REPORT INFORMATION
  Report Type: Spontaneous
  Country: US (occurrence: US)
  Receive Date: 20160909
  Receipt Date: 20160909
  Transmission Date: 20161109
  Serious: No
  Sender: FDA-Public Use
  Company Number: US-MEDA-2016080103

PATIENT
  Sex: Female

DRUGS (2)
  1. DYMISTA [Suspect]
     Active Substance: AZELASTINE HYDROCHLORIDE\FLUTICASONE PROPIONATE
     Indication: LOCAL SWELLING
     Dates: start: 20160826, end: 20160826
  2. DYMISTA [Suspect]
     Active Substance: AZELASTINE HYDROCHLORIDE\FLUTICASONE PROPIONATE
     Indication: SEASONAL ALLERGY
     Dates: start: 20160826, end: 20160826

REACTIONS (4)
  - Dyspnoea [Recovered/Resolved]
  - Wheezing [Recovering/Resolving]
  - Product quality issue [Unknown]
  - Sneezing [Recovered/Resolved]

NARRATIVE: CASE EVENT DATE: 20160826
